FAERS Safety Report 6249893-6 (Version None)
Quarter: 2009Q2

REPORT INFORMATION
  Report Type: 
  Country: None (occurrence: None)
  Receive Date: 20090624
  Receipt Date: 20090616
  Transmission Date: 20091009
  Serious: Yes (Death, Life-Threatening, Hospitalization)
  Sender: FDA-Public Use
  Company Number: ADR5092009

PATIENT
  Age: 90 Year
  Sex: Female

DRUGS (2)
  1. ALENDRONIC ACID (MFR: UNKNOWN) [Suspect]
     Indication: OSTEOPOROSIS
     Dosage: 70 MG ORAL
     Route: 048
     Dates: end: 20090513
  2. ASPIRIN [Concomitant]

REACTIONS (2)
  - GASTRIC CANCER [None]
  - OESOPHAGEAL CARCINOMA [None]
